FAERS Safety Report 22133468 (Version 27)
Quarter: 2025Q3

REPORT INFORMATION
  Report Type: Report from Study
  Country: US (occurrence: US)
  Receive Date: 20230324
  Receipt Date: 20250715
  Transmission Date: 20251020
  Serious: Yes (Hospitalization, Other)
  Sender: TAKEDA
  Company Number: US-TAKEDA-2022TUS091589

PATIENT
  Age: 24 Year
  Sex: Female

DRUGS (11)
  1. LANADELUMAB [Suspect]
     Active Substance: LANADELUMAB
     Indication: Immune system disorder
     Dosage: 300 MILLIGRAM, Q2WEEKS
     Dates: start: 20220828
  2. LANADELUMAB [Suspect]
     Active Substance: LANADELUMAB
     Dosage: 300 MILLIGRAM, Q2WEEKS
     Dates: start: 20221108
  3. LANADELUMAB [Suspect]
     Active Substance: LANADELUMAB
     Dosage: 300 MILLIGRAM, Q2WEEKS
     Dates: start: 20221109
  4. LANADELUMAB [Suspect]
     Active Substance: LANADELUMAB
     Dosage: 300 MILLIGRAM, Q2WEEKS
     Dates: start: 202211
  5. LANADELUMAB [Suspect]
     Active Substance: LANADELUMAB
     Dosage: 300 MILLIGRAM, Q4WEEKS
  6. BERINERT [Suspect]
     Active Substance: HUMAN C1-ESTERASE INHIBITOR
     Indication: Product used for unknown indication
  7. FORTEO [Suspect]
     Active Substance: TERIPARATIDE
     Indication: Product used for unknown indication
  8. DROXIDOPA [Concomitant]
     Active Substance: DROXIDOPA
  9. EPINEPHRINE [Concomitant]
     Active Substance: EPINEPHRINE
  10. SODIUM CHLORIDE [Concomitant]
     Active Substance: SODIUM CHLORIDE
  11. TERIPARATIDE [Concomitant]
     Active Substance: TERIPARATIDE

REACTIONS (25)
  - Nephrolithiasis [Unknown]
  - Gastrointestinal disorder [Unknown]
  - Complication associated with device [Recovering/Resolving]
  - Urinary tract infection [Recovering/Resolving]
  - Staphylococcal infection [Unknown]
  - Appendicitis [Unknown]
  - Kidney infection [Unknown]
  - Dystonia [Unknown]
  - Anaphylactic reaction [Unknown]
  - Hereditary angioedema [Recovered/Resolved]
  - Hypersensitivity [Unknown]
  - Weight decreased [Unknown]
  - Spinal pain [Unknown]
  - Faeces discoloured [Unknown]
  - COVID-19 [Unknown]
  - Product reconstitution quality issue [Unknown]
  - Product packaging issue [Unknown]
  - Injection site irritation [Unknown]
  - Inappropriate schedule of product administration [Unknown]
  - Renal vein compression [Unknown]
  - Product use issue [Unknown]
  - Menstrual disorder [Unknown]
  - Blood oestrogen abnormal [Unknown]
  - Osteoporosis [Unknown]
  - Injection site erythema [Unknown]

NARRATIVE: CASE EVENT DATE: 20221124
